FAERS Safety Report 7701294-7 (Version None)
Quarter: 2011Q3

REPORT INFORMATION
  Report Type: 
  Country: None (occurrence: None)
  Receive Date: 20110819
  Receipt Date: 20110819
  Transmission Date: 20111222
  Serious: Yes (Life-Threatening, Other)
  Sender: FDA-Public Use
  Company Number: None

PATIENT
  Age: 65 Year
  Sex: Female

DRUGS (1)
  1. HEPARIN [Suspect]
     Dosage: IV PER PHARMACY
     Route: 042
     Dates: start: 20110528, end: 20110531

REACTIONS (2)
  - MUSCLE HAEMORRHAGE [None]
  - FLANK PAIN [None]
